FAERS Safety Report 16867990 (Version 1)
Quarter: 2019Q3

REPORT INFORMATION
  Report Type: Spontaneous
  Country: JP (occurrence: JP)
  Receive Date: 20190930
  Receipt Date: 20190930
  Transmission Date: 20191005
  Serious: Yes (Other)
  Sender: FDA-Public Use
  Company Number: JP-GLAXOSMITHKLINE-JP2019GSK172327

PATIENT
  Sex: Male
  Weight: 22 kg

DRUGS (10)
  1. PREDNISOLONE. [Suspect]
     Active Substance: PREDNISOLONE
     Dosage: 7 MG, UNK
     Route: 048
  2. PREDNISOLONE. [Suspect]
     Active Substance: PREDNISOLONE
     Dosage: 5 MG, UNK
     Route: 048
  3. OMALIZUMAB. [Concomitant]
     Active Substance: OMALIZUMAB
     Indication: CHRONIC EOSINOPHILIC RHINOSINUSITIS
     Dosage: UNK (150 TO 300 MG ONCE EVERY 4 WEEKS)
  4. MONTELUKAST SODIUM. [Suspect]
     Active Substance: MONTELUKAST SODIUM
     Indication: ASTHMA
     Dosage: UNK
  5. CYCLOSPORINE. [Concomitant]
     Active Substance: CYCLOSPORINE
     Indication: PANCYTOPENIA
     Dosage: 5 MG/KG, UNK (PER DAY)
     Route: 048
  6. MOMETASONE FUROATE HYDRATE [Suspect]
     Active Substance: MOMETASONE FUROATE MONOHYDRATE
     Indication: ASTHMA
     Dosage: UNK UNK, BID
  7. PREDNISOLONE. [Suspect]
     Active Substance: PREDNISOLONE
     Indication: CHRONIC EOSINOPHILIC RHINOSINUSITIS
     Dosage: 10 MG, UNK (PER DAY)
     Route: 048
  8. FLUTICASONE PROPIONATE+SALMETEROL XINAFOATE [Suspect]
     Active Substance: FLUTICASONE PROPIONATE\SALMETEROL XINAFOATE
     Indication: ASTHMA
     Dosage: 100 UG, QID
  9. PREDNISOLONE. [Suspect]
     Active Substance: PREDNISOLONE
     Dosage: 4 MG, UNK
     Route: 048
  10. EPINASTINE HYDROCHLORIDE. [Suspect]
     Active Substance: EPINASTINE HYDROCHLORIDE
     Indication: ASTHMA
     Dosage: UNK

REACTIONS (8)
  - Disease recurrence [Unknown]
  - Asthma [Unknown]
  - Thrombocytopenia [Recovering/Resolving]
  - Drug ineffective [Unknown]
  - Chronic eosinophilic rhinosinusitis [Unknown]
  - Pancytopenia [Recovering/Resolving]
  - Quality of life decreased [Unknown]
  - Anaemia [Recovering/Resolving]
